FAERS Safety Report 10377760 (Version 3)
Quarter: 2014Q3

REPORT INFORMATION
  Report Type: Spontaneous
  Country: DE (occurrence: DE)
  Receive Date: 20140812
  Receipt Date: 20140922
  Transmission Date: 20150326
  Serious: Yes (Other)
  Sender: FDA-Public Use
  Company Number: PHHY2014DE097395

PATIENT
  Sex: Female

DRUGS (8)
  1. BRILIQUE [Concomitant]
     Active Substance: TICAGRELOR
  2. SIMVASTATIN. [Concomitant]
     Active Substance: SIMVASTATIN
  3. BELOC-ZOK COMP [Concomitant]
     Active Substance: HYDROCHLOROTHIAZIDE\METOPROLOL SUCCINATE
  4. METFORMIN [Concomitant]
     Active Substance: METFORMIN HYDROCHLORIDE
  5. ASPIRIN. [Concomitant]
     Active Substance: ASPIRIN
  6. CANDESARTAN [Concomitant]
     Active Substance: CANDESARTAN
  7. RANEXA [Concomitant]
     Active Substance: RANOLAZINE
  8. TASIGNA [Suspect]
     Active Substance: NILOTINIB
     Indication: CHRONIC MYELOID LEUKAEMIA
     Dosage: 2 DF, BID
     Dates: start: 201401, end: 201407

REACTIONS (4)
  - Diabetes mellitus [Unknown]
  - Coronary artery disease [Recovered/Resolved]
  - Angina pectoris [Unknown]
  - Acute coronary syndrome [Recovered/Resolved]

NARRATIVE: CASE EVENT DATE: 20140123
